FAERS Safety Report 6685763-7 (Version None)
Quarter: 2010Q2

REPORT INFORMATION
  Report Type: 
  Country: None (occurrence: None)
  Receive Date: 20100419
  Receipt Date: 20100408
  Transmission Date: 20101027
  Serious: Yes (Other)
  Sender: FDA-Public Use
  Company Number: IT-JNJFOC-20100402027

PATIENT
  Age: 70 Year
  Sex: Male

DRUGS (6)
  1. LEVOFLOXACIN [Suspect]
     Indication: URINARY TRACT INFECTION
     Route: 065
  2. LEVOFLOXACIN [Suspect]
     Route: 065
  3. AMIODARONE HYDROCHLORIDE [Concomitant]
     Route: 065
  4. INSULIN [Concomitant]
     Route: 065
  5. ANTI-ARRHYTHMIC [Concomitant]
     Route: 065
  6. ANTICOAGULANT [Concomitant]
     Route: 065

REACTIONS (2)
  - COORDINATION ABNORMAL [None]
  - HYPOKINESIA [None]
